FAERS Safety Report 8840076 (Version 1)
Quarter: 2012Q4

REPORT INFORMATION
  Report Type: 
  Country: US (occurrence: US)
  Receive Date: 20121015
  Receipt Date: 20121015
  Transmission Date: 20130627
  Serious: Yes (Other)
  Sender: FDA-Public Use
  Company Number: US-ASTRAZENECA-2012SE76536

PATIENT
  Age: 82 Year
  Sex: Male
  Weight: 77.1 kg

DRUGS (2)
  1. BRILINTA [Suspect]
     Indication: THROMBOSIS PROPHYLAXIS
     Route: 048
  2. CLARITHROMYCIN [Concomitant]
     Indication: BACTERIAL INFECTION

REACTIONS (1)
  - Dyspnoea [Recovering/Resolving]
